FAERS Safety Report 23627566 (Version 1)
Quarter: 2024Q1

REPORT INFORMATION
  Report Type: Spontaneous
  Country: US (occurrence: US)
  Receive Date: 20240313
  Receipt Date: 20240313
  Transmission Date: 20240410
  Serious: Yes (Hospitalization, Other)
  Sender: FDA-Public Use
  Company Number: US-EPICPHARMA-US-2024EPCSPO00277

PATIENT
  Age: 40 Year
  Sex: Male

DRUGS (2)
  1. CHOLESTYRAMINE [Suspect]
     Active Substance: CHOLESTYRAMINE
     Indication: Bile acid malabsorption
     Route: 065
  2. CHOLESTYRAMINE [Suspect]
     Active Substance: CHOLESTYRAMINE
     Indication: Blood cholesterol abnormal

REACTIONS (8)
  - Cholecystectomy [Unknown]
  - Sphincter of Oddi dysfunction [Unknown]
  - Blood bilirubin increased [Unknown]
  - Bile acids increased [Unknown]
  - Malabsorption [Unknown]
  - Gilbert^s syndrome [Unknown]
  - Drug ineffective [Unknown]
  - Drug ineffective for unapproved indication [Unknown]
